FAERS Safety Report 19201989 (Version 1)
Quarter: 2021Q2

REPORT INFORMATION
  Report Type: Spontaneous
  Country: UZ (occurrence: UZ)
  Receive Date: 20210502
  Receipt Date: 20210502
  Transmission Date: 20210717
  Serious: Yes (Other)
  Sender: FDA-Public Use
  Company Number: NVSC2018UZ012062

PATIENT
  Age: 7 Month
  Sex: Female

DRUGS (1)
  1. AMOXICLAV SANDOZ [Suspect]
     Active Substance: AMOXICILLIN\CLAVULANATE POTASSIUM
     Indication: UPPER RESPIRATORY TRACT INFECTION
     Dosage: 156.25 MG, BID
     Route: 048

REACTIONS (1)
  - Dermatitis allergic [Unknown]
